FAERS Safety Report 17206126 (Version 4)
Quarter: 2020Q2

REPORT INFORMATION
  Report Type: Report from Study
  Country: DE (occurrence: DE)
  Receive Date: 20191227
  Receipt Date: 20200625
  Transmission Date: 20200713
  Serious: Yes (Death, Other)
  Sender: FDA-Public Use
  Company Number: DE-TEVA-2019-DE-1157738

PATIENT
  Age: 58 Year
  Sex: Male

DRUGS (9)
  1. ETOPOSIDE. [Suspect]
     Active Substance: ETOPOSIDE
     Indication: PREMEDICATION
     Dosage: 280 MILLIGRAM DAILY; 280 MG, QD
     Route: 042
     Dates: start: 20190914, end: 20190917
  2. PLERIXAFOR [Suspect]
     Active Substance: PLERIXAFOR
     Indication: NON-HODGKIN^S LYMPHOMA
     Dosage: QD
     Route: 058
     Dates: start: 20190720, end: 20190723
  3. THIOTEPA. [Suspect]
     Active Substance: THIOTEPA
     Indication: PREMEDICATION
     Dosage: 560 MILLIGRAM DAILY; 560 MG, QD
     Route: 042
     Dates: start: 20190913, end: 20190913
  4. MELPHALAN. [Suspect]
     Active Substance: MELPHALAN
     Indication: PREMEDICATION
     Dosage: 260 MILLIGRAM DAILY; 260 MG, QD
     Route: 042
     Dates: start: 20190918, end: 20190918
  5. CYTARABINE. [Suspect]
     Active Substance: CYTARABINE
     Indication: PREMEDICATION
     Dosage: 760 MILLIGRAM DAILY; 760 MG, QD
     Route: 042
     Dates: start: 20190914, end: 20190917
  6. ATORVASTATIN [ATORVASTATIN CALCIUM] [Concomitant]
     Active Substance: ATORVASTATIN CALCIUM
     Indication: PREMEDICATION
     Dosage: 21.65 MILLIGRAM DAILY; 21.65 MG, QD, THERAPY START DATE AND THERAPY END DATE : ASKED BUT UNKNOWN
     Route: 048
  7. VALSARTAN. [Concomitant]
     Active Substance: VALSARTAN
     Indication: PREMEDICATION
     Dosage: 320 MILLIGRAM DAILY; 160 MG, BID, THERAPY START DATE AND THERAPY END DATE : ASKED BUT UNKNOWN
     Route: 048
  8. BISOPROLOL [Concomitant]
     Active Substance: BISOPROLOL
     Indication: PREMEDICATION
     Dosage: 5 MILLIGRAM DAILY; 2.5 MG, BID, THERAPY START DATE AND THERAPY END DATE : ASKED BUT UNKNOWN
     Route: 048
  9. AMOXYCILLIN [AMOXICILLIN] [Concomitant]
     Dosage: 1500 MILLIGRAM DAILY; 500MG, TID,THERAPY START DATE AND THERAPY END DATE : ASKED BUT UNKNOWN
     Route: 048

REACTIONS (2)
  - Neutropenic sepsis [Not Recovered/Not Resolved]
  - Multiple organ dysfunction syndrome [Fatal]

NARRATIVE: CASE EVENT DATE: 20190920
